FAERS Safety Report 9472364 (Version 2)
Quarter: 2013Q4

REPORT INFORMATION
  Report Type: Report from Study
  Country: US (occurrence: US)
  Receive Date: 20130823
  Receipt Date: 20131031
  Transmission Date: 20140711
  Serious: Yes (Death, Other)
  Sender: FDA-Public Use
  Company Number: US-ASTRAZENECA-2013SE64673

PATIENT
  Age: 94 Year
  Sex: Male
  Weight: 56.2 kg

DRUGS (10)
  1. NEXIUM [Suspect]
     Indication: ULCER
     Route: 048
     Dates: start: 2001, end: 20130810
  2. CRESTOR [Suspect]
     Indication: BLOOD CHOLESTEROL ABNORMAL
     Route: 048
     Dates: start: 2007, end: 20130710
  3. ASPIRIN [Concomitant]
     Route: 048
  4. TRAMADOL [Concomitant]
     Route: 048
  5. MULTAG [Concomitant]
     Route: 048
  6. LEVOTHYROXINE [Concomitant]
     Route: 048
  7. LASIX [Concomitant]
     Route: 048
  8. FLOMAX [Concomitant]
     Route: 048
  9. VIT C [Concomitant]
     Route: 048
  10. DILANTIN [Concomitant]
     Dosage: 300- 400 MG DAILY
     Route: 048

REACTIONS (7)
  - Death [Fatal]
  - Cerebrovascular accident [Unknown]
  - Hip fracture [Unknown]
  - Ankle fracture [Unknown]
  - Weight decreased [Unknown]
  - Atrial fibrillation [Unknown]
  - Gastrointestinal disorder [Unknown]
